FAERS Safety Report 5950679-8 (Version None)
Quarter: 2008Q4

REPORT INFORMATION
  Report Type: 
  Country: None (occurrence: None)
  Receive Date: 20081022
  Receipt Date: 20080812
  Transmission Date: 20090506
  Serious: No
  Sender: FDA-Public Use
  Company Number: ALL1-2008-01818

PATIENT
  Age: 8 Year
  Sex: Female
  Weight: 28.7 kg

DRUGS (5)
  1. VYVANSE [Suspect]
     Dosage: 30 MG, 1X/DAY:QD,ORAL; 50 MG, 1X/DAY:QD,ORAL
     Route: 048
     Dates: start: 20071022, end: 20071118
  2. VYVANSE [Suspect]
     Dosage: 30 MG, 1X/DAY:QD,ORAL; 50 MG, 1X/DAY:QD,ORAL
     Route: 048
     Dates: start: 20071119, end: 20080304
  3. VYVANSE [Suspect]
     Dosage: 30 MG, 1X/DAY:QD,ORAL; 50 MG, 1X/DAY:QD,ORAL
     Route: 048
     Dates: start: 20080305, end: 20080615
  4. VYVANSE [Suspect]
     Dosage: 30 MG, 1X/DAY:QD,ORAL; 50 MG, 1X/DAY:QD,ORAL
     Route: 048
     Dates: start: 20080616
  5. ADDERALL (AMFETAMINE ASPARTATE, AMFETAMINE SULFATE, DEXAMETAMINE SACCH [Concomitant]

REACTIONS (2)
  - DERMATILLOMANIA [None]
  - PRURITUS [None]
